FAERS Safety Report 7382415-5 (Version None)
Quarter: 2011Q1

REPORT INFORMATION
  Report Type: 
  Country: None (occurrence: None)
  Receive Date: 20110329
  Receipt Date: 20110314
  Transmission Date: 20110831
  Serious: Yes (Other)
  Sender: FDA-Public Use
  Company Number: US-BAYER-201037430NA

PATIENT
  Sex: Female

DRUGS (1)
  1. YASMIN [Suspect]
     Indication: ACNE
     Route: 048
     Dates: start: 20070712, end: 20071226

REACTIONS (2)
  - CHOLECYSTITIS CHRONIC [None]
  - GALLBLADDER INJURY [None]
